FAERS Safety Report 12210403 (Version 1)
Quarter: 2016Q1

REPORT INFORMATION
  Report Type: Spontaneous
  Country: US (occurrence: None)
  Receive Date: 20160324
  Receipt Date: 20160324
  Transmission Date: 20160526
  Serious: No
  Sender: FDA-Public Use
  Company Number: None

PATIENT
  Age: 59 Year
  Sex: Male
  Weight: 72.58 kg

DRUGS (6)
  1. TOPICAL OINTMENT WITH CAPSICAM [Concomitant]
  2. RANATIDINE [Concomitant]
  3. MELOXICAM. [Suspect]
     Active Substance: MELOXICAM
     Indication: DRUG THERAPY
     Route: 048
     Dates: start: 20160311, end: 20160314
  4. IBUPROFEN. [Concomitant]
     Active Substance: IBUPROFEN
  5. METHADONE [Concomitant]
     Active Substance: METHADONE HYDROCHLORIDE
  6. GENERIC MULTI-VITAMIN [Concomitant]

REACTIONS (5)
  - Abdominal pain [None]
  - Chromaturia [None]
  - Dizziness [None]
  - Salivary hypersecretion [None]
  - Swollen tongue [None]

NARRATIVE: CASE EVENT DATE: 20160314
